FAERS Safety Report 5867890-7 (Version None)
Quarter: 2008Q3

REPORT INFORMATION
  Report Type: 
  Country: None (occurrence: None)
  Receive Date: 20080902
  Receipt Date: 20080710
  Transmission Date: 20090109
  Serious: No
  Sender: FDA-Public Use
  Company Number: US-ABBOTT-08P-163-0462355-00

PATIENT
  Sex: Male
  Weight: 75.364 kg

DRUGS (6)
  1. DEPAKOTE ER [Suspect]
     Indication: BIPOLAR DISORDER
     Dosage: 500 MG IN THE EVENING
     Route: 048
     Dates: start: 20080627
  2. BUDESONIDE W/FORMOTEROL FUMARATE [Concomitant]
     Indication: ASTHMA
     Route: 055
     Dates: start: 20070601
  3. BECLOMETHASONE DIPROPIONATE [Concomitant]
     Indication: ASTHMA
     Route: 055
     Dates: start: 20070601
  4. ZOBINEX [Concomitant]
     Indication: ASTHMA
     Route: 055
     Dates: start: 20070601
  5. PAROXETINE HCL [Concomitant]
     Indication: DEPRESSION
     Route: 048
     Dates: start: 20080701
  6. CETIRIZINE HYDROCHLORIDE [Concomitant]
     Indication: SEASONAL ALLERGY
     Route: 048
     Dates: start: 20080401

REACTIONS (3)
  - ARTHROPOD BITE [None]
  - HEADACHE [None]
  - RASH [None]
